FAERS Safety Report 15534186 (Version 4)
Quarter: 2019Q1

REPORT INFORMATION
  Report Type: Report from Study
  Country: US (occurrence: US)
  Receive Date: 20181021
  Receipt Date: 20190201
  Transmission Date: 20190417
  Serious: No
  Sender: FDA-Public Use
  Company Number: PHEH2018US044056

PATIENT
  Sex: Female

DRUGS (2)
  1. COSENTYX [Suspect]
     Active Substance: SECUKINUMAB
     Indication: PSORIASIS
  2. COSENTYX [Suspect]
     Active Substance: SECUKINUMAB
     Indication: PSORIATIC ARTHROPATHY
     Dosage: 150 MG, QMO
     Route: 058
     Dates: start: 20180801

REACTIONS (6)
  - Fall [Unknown]
  - Upper respiratory tract infection [Unknown]
  - Ligament sprain [Unknown]
  - Sinusitis [Unknown]
  - Therapeutic response decreased [Unknown]
  - Nasopharyngitis [Unknown]
